FAERS Safety Report 6888290-7 (Version None)
Quarter: 2010Q3

REPORT INFORMATION
  Report Type: 
  Country: None (occurrence: None)
  Receive Date: 20100730
  Receipt Date: 20100722
  Transmission Date: 20110219
  Serious: Yes (Hospitalization)
  Sender: FDA-Public Use
  Company Number: PH-BRISTOL-MYERS SQUIBB COMPANY-15190606

PATIENT
  Age: 39 Year
  Sex: Male

DRUGS (5)
  1. BLINDED: ARIPIPRAZOLE IM [Suspect]
     Indication: SCHIZOPHRENIA
     Dosage: IM DEPOT:24JUN10(1D), STUDY TERMINATED ON 08-JUL-2010.
     Route: 030
     Dates: start: 20100624, end: 20100624
  2. ARIPIPRAZOLE [Suspect]
     Indication: SCHIZOPHRENIA
     Dosage: P2: 24JUN10-24JUN10. P3W1:28JUN10-04JUL10. INCREASED P3W2: TO 15MG BETWEEN 05JUL10-07JUL2010
     Route: 048
     Dates: start: 20100624, end: 20100704
  3. BLINDED: PLACEBO [Suspect]
     Indication: SCHIZOPHRENIA
  4. CLONAZEPAM [Concomitant]
     Dates: start: 19891019
  5. BIPERIDEN HYDROCHLORIDE TAB [Concomitant]
     Dates: start: 19880826

REACTIONS (1)
  - SCHIZOPHRENIA [None]
